FAERS Safety Report 23225629 (Version 1)
Quarter: 2023Q4

REPORT INFORMATION
  Report Type: Other
  Country: NL (occurrence: None)
  Receive Date: 20231124
  Receipt Date: 20231124
  Transmission Date: 20240110
  Serious: Yes (Death, Other)
  Sender: FDA-Public Use
  Company Number: NL-ROCHE-3458651

PATIENT

DRUGS (7)
  1. BEVACIZUMAB [Suspect]
     Active Substance: BEVACIZUMAB
     Indication: Metastases to peritoneum
     Route: 042
  2. IRINOTECAN [Suspect]
     Active Substance: IRINOTECAN
     Indication: Metastases to peritoneum
     Route: 033
  3. IRINOTECAN [Suspect]
     Active Substance: IRINOTECAN
     Route: 033
  4. IRINOTECAN [Suspect]
     Active Substance: IRINOTECAN
     Route: 033
  5. FLUOROURACIL [Suspect]
     Active Substance: FLUOROURACIL
     Indication: Metastases to peritoneum
     Route: 042
  6. LEUCOVORIN [Suspect]
     Active Substance: LEUCOVORIN\LEUCOVORIN CALCIUM
     Indication: Metastases to peritoneum
     Route: 042
  7. OXALIPLATIN [Suspect]
     Active Substance: OXALIPLATIN
     Indication: Metastases to peritoneum
     Route: 042

REACTIONS (42)
  - Fatigue [Unknown]
  - Malaise [Unknown]
  - Dyspnoea [Unknown]
  - Myocardial infarction [Unknown]
  - Diarrhoea [Unknown]
  - Infusion site extravasation [Unknown]
  - Dehydration [Unknown]
  - Pulmonary embolism [Unknown]
  - Pyrexia [Unknown]
  - Nausea [Unknown]
  - Vomiting [Unknown]
  - Gastrointestinal perforation [Unknown]
  - Constipation [Unknown]
  - Abdominal sepsis [Fatal]
  - Ileus paralytic [Unknown]
  - Abdominal pain [Unknown]
  - Acute kidney injury [Unknown]
  - Anaemia [Unknown]
  - Decreased appetite [Unknown]
  - Cough [Unknown]
  - Dizziness [Unknown]
  - Dry skin [Unknown]
  - Dysgeusia [Unknown]
  - Blood alkaline phosphatase increased [Unknown]
  - Alanine aminotransferase increased [Unknown]
  - Aspartate aminotransferase increased [Unknown]
  - Gamma-glutamyltransferase increased [Unknown]
  - Blood glucose increased [Unknown]
  - Epistaxis [Unknown]
  - Palmar-plantar erythrodysaesthesia syndrome [Unknown]
  - Dysphonia [Unknown]
  - Hyperkalaemia [Unknown]
  - Hypoalbuminaemia [Unknown]
  - Hypocalcaemia [Unknown]
  - Hypokalaemia [Unknown]
  - Hypomagnesaemia [Unknown]
  - Hyponatraemia [Unknown]
  - Infection [Unknown]
  - Insomnia [Unknown]
  - Renal impairment [Unknown]
  - Leukopenia [Unknown]
  - Peripheral motor neuropathy [Unknown]
